APPROVED DRUG PRODUCT: DHIVY
Active Ingredient: CARBIDOPA; LEVODOPA
Strength: 25MG;100MG
Dosage Form/Route: TABLET;ORAL
Application: N214869 | Product #001
Applicant: AVION PHARMACEUTICALS LLC
Approved: Nov 12, 2021 | RLD: Yes | RS: Yes | Type: RX

PATENTS:
Patent 11819485 | Expires: Mar 28, 2039
Patent 11439613 | Expires: Mar 28, 2039
Patent 11033521 | Expires: Mar 28, 2039
Patent 11033521 | Expires: Mar 28, 2039
Patent 11033521 | Expires: Mar 28, 2039